FAERS Safety Report 24245042 (Version 1)
Quarter: 2024Q3

REPORT INFORMATION
  Report Type: Spontaneous
  Country: GB (occurrence: GB)
  Receive Date: 20240823
  Receipt Date: 20240823
  Transmission Date: 20241016
  Serious: Yes (Other)
  Sender: ELI LILLY AND CO
  Company Number: None

PATIENT
  Age: 42 Year
  Sex: Female
  Weight: 94 kg

DRUGS (2)
  1. MOUNJARO [Suspect]
     Active Substance: TIRZEPATIDE
     Indication: Weight control
     Dosage: 2.5 MG, UNKNOWN
     Route: 065
     Dates: start: 20240720
  2. MOUNJARO [Suspect]
     Active Substance: TIRZEPATIDE
     Indication: Weight control
     Dosage: 2.5 MG, UNKNOWN
     Route: 065
     Dates: start: 20240720

REACTIONS (4)
  - Depressed mood [Unknown]
  - Vaginal haemorrhage [Unknown]
  - Heavy menstrual bleeding [Unknown]
  - Dysmenorrhoea [Recovered/Resolved with Sequelae]

NARRATIVE: CASE EVENT DATE: 20240801
